FAERS Safety Report 12423968 (Version 1)
Quarter: 2016Q2

REPORT INFORMATION
  Report Type: Spontaneous
  Country: US (occurrence: None)
  Receive Date: 20160531
  Receipt Date: 20160531
  Transmission Date: 20160815
  Serious: Yes (Other)
  Sender: FDA-Public Use
  Company Number: None

PATIENT
  Age: 40 Year
  Sex: Male

DRUGS (2)
  1. SILDENAFIL. [Suspect]
     Active Substance: SILDENAFIL
  2. BLACK MAMBA MALE ENHANCEMENT [Suspect]
     Active Substance: DIETARY SUPPLEMENT
     Indication: DRUG THERAPY ENHANCEMENT
     Route: 048
     Dates: start: 20160420, end: 20160420

REACTIONS (5)
  - Vomiting [None]
  - Photopsia [None]
  - Nausea [None]
  - Headache [None]
  - Myalgia [None]

NARRATIVE: CASE EVENT DATE: 20160420
